FAERS Safety Report 11699936 (Version 1)
Quarter: 2015Q4

REPORT INFORMATION
  Report Type: Spontaneous
  Country: US (occurrence: US)
  Receive Date: 20151105
  Receipt Date: 20151105
  Transmission Date: 20160304
  Serious: No
  Sender: FDA-Public Use
  Company Number: US-009507513-1511USA002003

PATIENT
  Age: 63 Year
  Sex: Male

DRUGS (2)
  1. BELSOMRA [Suspect]
     Active Substance: SUVOREXANT
     Indication: INSOMNIA
     Dosage: 10 MG, UNK
     Route: 048
     Dates: start: 201510, end: 20151102
  2. AMBIEN [Concomitant]
     Active Substance: ZOLPIDEM TARTRATE
     Dosage: OCCASIONALLY

REACTIONS (1)
  - Drug ineffective [Not Recovered/Not Resolved]

NARRATIVE: CASE EVENT DATE: 201510
